FAERS Safety Report 7236905-6 (Version None)
Quarter: 2011Q1

REPORT INFORMATION
  Report Type: 
  Country: None (occurrence: None)
  Receive Date: 20110120
  Receipt Date: 20110110
  Transmission Date: 20110831
  Serious: Yes (Hospitalization)
  Sender: FDA-Public Use
  Company Number: AU-BRISTOL-MYERS SQUIBB COMPANY-15472939

PATIENT
  Age: 26 Year
  Sex: Male

DRUGS (15)
  1. TRIMETHOPRIM + SULFAMETHOXAZOLE [Suspect]
     Indication: CYTOMEGALOVIRUS TEST
  2. VALGANCICLOVIR HCL [Suspect]
     Indication: FUNGAL TEST POSITIVE
  3. CASPOFUNGIN ACETATE [Concomitant]
  4. VORICONAZOLE [Concomitant]
  5. AMPHOTERICIN B [Suspect]
     Indication: FUNGAL TEST POSITIVE
  6. AMPHOTERICIN B [Suspect]
     Indication: CYTOMEGALOVIRUS TEST
  7. TRIMETHOPRIM + SULFAMETHOXAZOLE [Suspect]
     Indication: ANTIFUNGAL PROPHYLAXIS
  8. TACROLIMUS [Suspect]
     Indication: ANTIFUNGAL PROPHYLAXIS
  9. FLUCONAZOLE [Suspect]
  10. VALGANCICLOVIR HCL [Suspect]
     Indication: CYTOMEGALOVIRUS TEST
  11. AMPHOTERICIN B [Suspect]
     Indication: ANTIFUNGAL PROPHYLAXIS
  12. VALGANCICLOVIR HCL [Suspect]
     Indication: ANTIFUNGAL PROPHYLAXIS
  13. MEROPENEM [Suspect]
  14. TRIMETHOPRIM + SULFAMETHOXAZOLE [Suspect]
     Indication: FUNGAL TEST POSITIVE
  15. CIPROFLOXACIN [Suspect]

REACTIONS (4)
  - STATUS EPILEPTICUS [None]
  - OSTEOMYELITIS [None]
  - POSTERIOR REVERSIBLE ENCEPHALOPATHY SYNDROME [None]
  - ARTHRITIS BACTERIAL [None]
